FAERS Safety Report 7859128-6 (Version None)
Quarter: 2011Q4

REPORT INFORMATION
  Report Type: 
  Country: None (occurrence: None)
  Receive Date: 20111027
  Receipt Date: 20111026
  Transmission Date: 20120403
  Serious: Yes (Death)
  Sender: FDA-Public Use
  Company Number: PHEH2011US01556

PATIENT
  Sex: Male

DRUGS (6)
  1. FOLIC ACID [Concomitant]
  2. AVASTIN [Concomitant]
     Dosage: UNK
     Dates: end: 20110223
  3. CARBOPLATIN [Concomitant]
     Dosage: UNK
     Dates: end: 20110223
  4. ZOMETA [Suspect]
     Dosage: 4 MG, UNK
     Route: 065
     Dates: end: 20110207
  5. LORTAB [Concomitant]
  6. GLIMETAL [Concomitant]
     Dosage: UNK
     Dates: end: 20110223

REACTIONS (1)
  - LUNG NEOPLASM MALIGNANT [None]
